FAERS Safety Report 5327671-X (Version None)
Quarter: 2007Q2

REPORT INFORMATION
  Report Type: 
  Country: None (occurrence: None)
  Receive Date: 20070220
  Receipt Date: 20061206
  Transmission Date: 20071010
  Serious: No
  Sender: FDA-Public Use
  Company Number: WAES 0612USA01012

PATIENT
  Age: 61 Year
  Sex: Female
  Weight: 79.3795 kg

DRUGS (3)
  1. JANUVIA [Suspect]
     Indication: BLOOD GLUCOSE INCREASED
     Dosage: 100 MG, DAILY, PO
     Route: 048
     Dates: start: 20061027, end: 20061129
  2. COZAAR [Concomitant]
  3. ZOCOR [Concomitant]

REACTIONS (1)
  - EPISTAXIS [None]
